FAERS Safety Report 10103360 (Version 2)
Quarter: 2014Q2

REPORT INFORMATION
  Report Type: Other
  Country: US (occurrence: US)
  Receive Date: 20140424
  Receipt Date: 20140609
  Transmission Date: 20141212
  Serious: Yes (Hospitalization, Other)
  Sender: FDA-Public Use
  Company Number: US-GSKPPD-2014GSK000058

PATIENT
  Age: 73 Year
  Sex: Male
  Weight: 112.59 kg

DRUGS (6)
  1. AVANDIA [Suspect]
     Indication: DIABETES MELLITUS
     Route: 048
     Dates: start: 20070321, end: 20080411
  2. METOPROLOL [Concomitant]
  3. ASPIRIN [Concomitant]
  4. AMLODIPINE BESYLATE [Concomitant]
  5. LISINOPRIL [Concomitant]
  6. FUROSEMIDE [Concomitant]

REACTIONS (1)
  - Myocardial infarction [Recovered/Resolved]
